FAERS Safety Report 12750884 (Version 2)
Quarter: 2016Q4

REPORT INFORMATION
  Report Type: Spontaneous
  Country: ZA (occurrence: ZA)
  Receive Date: 20160916
  Receipt Date: 20161028
  Transmission Date: 20170207
  Serious: Yes (Hospitalization, Other)
  Sender: FDA-Public Use
  Company Number: ZA-BAYER-2016-179771

PATIENT
  Age: 45 Year
  Sex: Female

DRUGS (1)
  1. MIRENA [Suspect]
     Active Substance: LEVONORGESTREL
     Dosage: 20 MCG/24HR, CONT
     Route: 015
     Dates: start: 201608, end: 20160831

REACTIONS (12)
  - Hypokalaemia [None]
  - Pyrexia [None]
  - Peritonitis [None]
  - Pyometra [None]
  - Staphylococcal infection [None]
  - Pneumonia [None]
  - Pain [None]
  - Cervicitis [None]
  - Myometritis [None]
  - Purulent discharge [None]
  - Endometritis [None]
  - Salpingitis [None]

NARRATIVE: CASE EVENT DATE: 201608
